FAERS Safety Report 17263190 (Version 1)
Quarter: 2020Q1

REPORT INFORMATION
  Report Type: Spontaneous
  Country: US (occurrence: US)
  Receive Date: 20200111
  Receipt Date: 20200111
  Transmission Date: 20200409
  Serious: Yes (Other)
  Sender: FDA-Public Use
  Company Number: None

PATIENT
  Age: 56 Year
  Sex: Female
  Weight: 72 kg

DRUGS (7)
  1. OXYCODONE [Concomitant]
     Active Substance: OXYCODONE
  2. METOPROLOL. [Concomitant]
     Active Substance: METOPROLOL
  3. CENTRUM MULTIFITAMIN FOR WOMEN OVER 50 [Concomitant]
  4. ESTRIODIAL [Concomitant]
  5. AMBIEN [Concomitant]
     Active Substance: ZOLPIDEM TARTRATE
  6. XANAX [Concomitant]
     Active Substance: ALPRAZOLAM
  7. AIMOVIG [Suspect]
     Active Substance: ERENUMAB-AOOE
     Indication: MIGRAINE
     Dosage: ?          QUANTITY:1 INJECTION(S);OTHER FREQUENCY:MONTHLY;OTHER ROUTE:INJECTION IN LOOSE SKIN?
     Dates: start: 20191010, end: 20191210

REACTIONS (2)
  - Depression [None]
  - Pain in extremity [None]

NARRATIVE: CASE EVENT DATE: 20191010
